FAERS Safety Report 5052509-8 (Version None)
Quarter: 2006Q3

REPORT INFORMATION
  Report Type: 
  Country: None (occurrence: None)
  Receive Date: 20060713
  Receipt Date: 20060713
  Transmission Date: 20061208
  Serious: Yes (Death)
  Sender: FDA-Public Use
  Company Number: None

PATIENT
  Age: 81 Year
  Sex: Male

DRUGS (1)
  1. METHOTREXATE [Suspect]
     Dosage: 15 MILLIGRAMS QWEEKLY PO
     Route: 048

REACTIONS (12)
  - BLOOD CREATINE PHOSPHOKINASE INCREASED [None]
  - BLOOD PRESSURE ABNORMAL [None]
  - CARDIAC ARREST [None]
  - CHOLECYSTECTOMY [None]
  - COLOSTOMY [None]
  - DIARRHOEA [None]
  - DIVERTICULAR PERFORATION [None]
  - FAECAL INCONTINENCE [None]
  - FALL [None]
  - HAEMODIALYSIS [None]
  - OXYGEN SATURATION DECREASED [None]
  - RENAL FAILURE ACUTE [None]
